FAERS Safety Report 23939548 (Version 1)
Quarter: 2024Q2

REPORT INFORMATION
  Report Type: Spontaneous
  Country: CA (occurrence: CA)
  Receive Date: 20240605
  Receipt Date: 20240605
  Transmission Date: 20240716
  Serious: Yes (Life-Threatening, Hospitalization, Other)
  Sender: FDA-Public Use
  Company Number: CA-AUROBINDO-AUR-APL-2024-026499

PATIENT
  Age: 16 Year
  Sex: Male
  Weight: 97 kg

DRUGS (8)
  1. TRANEXAMIC ACID [Suspect]
     Active Substance: TRANEXAMIC ACID
     Indication: Transplant
     Dosage: UNK, AS NECESSARY
     Route: 061
  2. ALEMTUZUMAB [Suspect]
     Active Substance: ALEMTUZUMAB
     Indication: Transplant
     Dosage: 2.9 MILLIGRAM, ONCE A DAY
     Route: 042
  3. ALEMTUZUMAB [Suspect]
     Active Substance: ALEMTUZUMAB
     Dosage: 9.5 MILLIGRAM, ONCE A DAY
     Route: 042
  4. SIROLIMUS [Suspect]
     Active Substance: SIROLIMUS
     Indication: Transplant
     Dosage: 5 MILLIGRAM, 3 TIMES A DAY
     Route: 048
  5. AMLODIPINE [Concomitant]
     Active Substance: AMLODIPINE BESYLATE
     Indication: Product used for unknown indication
     Dosage: UNK
     Route: 065
  6. CHOLECALCIFEROL [Concomitant]
     Active Substance: CHOLECALCIFEROL
     Indication: Product used for unknown indication
     Dosage: UNK
     Route: 065
  7. FLUCONAZOLE [Concomitant]
     Active Substance: FLUCONAZOLE
     Indication: Product used for unknown indication
     Dosage: UNK
     Route: 065
  8. LANSOPRAZOLE [Concomitant]
     Active Substance: LANSOPRAZOLE
     Indication: Product used for unknown indication
     Dosage: UNK
     Route: 065

REACTIONS (3)
  - Aplastic anaemia [Recovered/Resolved]
  - Sickle cell anaemia [Recovered/Resolved]
  - Lymphocyte count decreased [Recovered/Resolved]
